FAERS Safety Report 10132634 (Version 1)
Quarter: 2014Q2

REPORT INFORMATION
  Report Type: Spontaneous
  Country: US (occurrence: US)
  Receive Date: 20140428
  Receipt Date: 20140428
  Transmission Date: 20141212
  Serious: No
  Sender: FDA-Public Use
  Company Number: US-ASTRAZENECA-2014SE25048

PATIENT
  Age: 79 Year
  Sex: Female
  Weight: 61.2 kg

DRUGS (16)
  1. ATACAND [Suspect]
     Indication: HYPERTENSION
     Route: 048
     Dates: start: 2007, end: 201307
  2. ATACAND [Suspect]
     Indication: HYPERTENSION
     Dosage: GENERIC CANDESARTAN CILEXETIL
     Route: 048
     Dates: start: 201307, end: 201311
  3. ATACAND [Suspect]
     Indication: HYPERTENSION
     Route: 048
     Dates: start: 201311
  4. MORPHINE [Suspect]
     Route: 065
  5. LIPITOR [Concomitant]
     Indication: BLOOD CHOLESTEROL ABNORMAL
     Route: 048
  6. LIPITOR [Concomitant]
     Indication: BLOOD CHOLESTEROL ABNORMAL
     Route: 048
     Dates: start: 2012
  7. CALCIUM [Concomitant]
     Indication: BONE DENSITY ABNORMAL
     Dosage: UNKNOWN DOSE, DAILY
     Route: 048
     Dates: start: 2004
  8. VITAMIN D [Concomitant]
     Dosage: UNKNOWN DOSE, DAILY
     Route: 048
     Dates: start: 2012
  9. GLUCOSAMINE [Concomitant]
     Indication: ARTHROPATHY
     Dosage: 1500-2000 MG, THREE TIMES A DAY
     Route: 048
     Dates: start: 2008
  10. TRIAMTERENE HCTZ [Concomitant]
     Dosage: 37.5 MG AND 25 MG, ONE TABLET FOR TWO DAYS AND THEN HALF ON THE THIRD DAY
     Route: 048
  11. SYNTHROID [Concomitant]
     Indication: HYPOTHYROIDISM
     Route: 048
     Dates: start: 1974
  12. NIACIN [Concomitant]
     Indication: BLOOD CHOLESTEROL ABNORMAL
     Route: 048
     Dates: start: 2010
  13. TYLENOL [Concomitant]
     Indication: PAIN
     Route: 048
  14. UNKNOWN MEDICATION [Concomitant]
     Indication: ARTHROPATHY
  15. VERAPAMIL [Concomitant]
     Indication: HYPERTENSION
     Route: 048
  16. VITAMINS [Concomitant]
     Dosage: DOSE AND FREQUENCY UNKNOWN
     Route: 048

REACTIONS (10)
  - Blood pressure increased [Unknown]
  - Arthropathy [Unknown]
  - Syncope [Unknown]
  - Vertigo [Recovered/Resolved]
  - Seasonal allergy [Unknown]
  - Dizziness [Recovered/Resolved]
  - Blood sodium decreased [Unknown]
  - Tremor [Unknown]
  - Paradoxical drug reaction [Unknown]
  - Drug ineffective [Unknown]
